FAERS Safety Report 18164781 (Version 2)
Quarter: 2020Q4

REPORT INFORMATION
  Report Type: Spontaneous
  Country: FR (occurrence: FR)
  Receive Date: 20200818
  Receipt Date: 20201014
  Transmission Date: 20210113
  Serious: Yes (Other)
  Sender: FDA-Public Use
  Company Number: FR-CELGENEUS-FRA-20200802541

PATIENT
  Sex: Female

DRUGS (1)
  1. REVLIMID [Suspect]
     Active Substance: LENALIDOMIDE
     Indication: PLASMA CELL MYELOMA
     Route: 048
     Dates: start: 2019

REACTIONS (4)
  - Neuropathy peripheral [Not Recovered/Not Resolved]
  - Disturbance in attention [Unknown]
  - Amnesia [Unknown]
  - Intellectual disability [Not Recovered/Not Resolved]

NARRATIVE: CASE EVENT DATE: 2020
